FAERS Safety Report 7418509-5 (Version None)
Quarter: 2011Q2

REPORT INFORMATION
  Report Type: 
  Country: None (occurrence: None)
  Receive Date: 20110415
  Receipt Date: 20110407
  Transmission Date: 20111010
  Serious: Yes (Hospitalization, Other)
  Sender: FDA-Public Use
  Company Number: US-PURDUE-USA-2011-0065728

PATIENT
  Age: 64 Year
  Sex: Male

DRUGS (1)
  1. MORPHINE SULFATE [Suspect]
     Indication: PAIN
     Dosage: 100 MG, Q4H
     Route: 030

REACTIONS (3)
  - FEELING ABNORMAL [None]
  - LUNG NEOPLASM MALIGNANT [None]
  - DRUG DEPENDENCE [None]
